FAERS Safety Report 11666526 (Version 4)
Quarter: 2016Q1

REPORT INFORMATION
  Report Type: Report from Study
  Country: US (occurrence: US)
  Receive Date: 20151027
  Receipt Date: 20160212
  Transmission Date: 20160525
  Serious: No
  Sender: FDA-Public Use
  Company Number: PHHY2015US129357

PATIENT
  Sex: Female

DRUGS (1)
  1. PROMACTA [Suspect]
     Active Substance: ELTROMBOPAG OLAMINE
     Indication: PRODUCT USED FOR UNKNOWN INDICATION
     Dosage: 2 DF, QD
     Route: 065
     Dates: start: 201508

REACTIONS (7)
  - Contusion [Unknown]
  - Headache [Unknown]
  - Dizziness [Unknown]
  - Platelet count decreased [Unknown]
  - Liver disorder [Unknown]
  - Pruritus [Unknown]
  - Urticaria [Unknown]
